FAERS Safety Report 22114337 (Version 1)
Quarter: 2023Q1

REPORT INFORMATION
  Report Type: Report from Study
  Country: US (occurrence: US)
  Receive Date: 20230320
  Receipt Date: 20230320
  Transmission Date: 20230417
  Serious: Yes (Hospitalization)
  Sender: FDA-Public Use
  Company Number: US-ARGENX-2023-ARGX-US000122

PATIENT

DRUGS (1)
  1. VYVGART [Suspect]
     Active Substance: EFGARTIGIMOD ALFA-FCAB
     Indication: Myasthenia gravis
     Dosage: 700 MG
     Route: 042
     Dates: start: 20230102

REACTIONS (9)
  - Thymectomy [Unknown]
  - Pre-existing condition improved [Recovering/Resolving]
  - Anxiety [Unknown]
  - Depression [Unknown]
  - Fatigue [Unknown]
  - Dyspnoea exertional [Unknown]
  - Eyelid ptosis [Unknown]
  - Diplopia [Unknown]
  - Headache [Unknown]
